FAERS Safety Report 17179063 (Version 1)
Quarter: 2019Q4

REPORT INFORMATION
  Report Type: Spontaneous
  Country: US (occurrence: US)
  Receive Date: 20191219
  Receipt Date: 20191219
  Transmission Date: 20200122
  Serious: No
  Sender: FDA-Public Use
  Company Number: US-009507513-1912USA007147

PATIENT
  Age: 37 Year
  Sex: Female

DRUGS (1)
  1. NUVARING [Suspect]
     Active Substance: ETHINYL ESTRADIOL\ETONOGESTREL
     Indication: CONTRACEPTION
     Dosage: 1 DOSAGE FORM
     Route: 067
     Dates: start: 2012

REACTIONS (2)
  - Incorrect product administration duration [Unknown]
  - Abnormal withdrawal bleeding [Not Recovered/Not Resolved]
